FAERS Safety Report 9378936 (Version 1)
Quarter: 2013Q1

REPORT INFORMATION
  Report Type: Spontaneous
  Country: CH (occurrence: None)
  Receive Date: 20121109
  Receipt Date: 20121109
  Transmission Date: 20140127
  Serious: Yes (Hospitalization, Other)
  Sender: FDA-Public Use
  Company Number: 2012S1000062

PATIENT
  Age: 75 Year
  Sex: Female

DRUGS (12)
  1. CUBICIN (DAPTOMYCIN) [Suspect]
     Indication: DEVICE RELATED INFECTION
     Route: 042
     Dates: start: 20111026, end: 20111108
  2. CUBICIN (DAPTOMYCIN) [Suspect]
     Indication: ENTEROCOCCAL INFECTION
     Route: 042
     Dates: start: 20111026, end: 20111108
  3. CIPROFLOXACIN [Concomitant]
  4. CO-ENATEC [Concomitant]
  5. BELOC-ZOK [Concomitant]
  6. MIANSERIN [Concomitant]
  7. VENLAFAXINE [Concomitant]
  8. GLIMEPIRIDE [Concomitant]
  9. PARACETAMOL [Concomitant]
  10. MORPHINE SULFATE [Concomitant]
  11. METAMIZOLE SODIUM MONOHYDRATE [Concomitant]
  12. AMOXICILLIN [Concomitant]

REACTIONS (9)
  - Graft infection [None]
  - Urosepsis [None]
  - Eosinophilic pneumonia [None]
  - Drug hypersensitivity [None]
  - Rash [None]
  - Blood creatine phosphokinase increased [None]
  - Obesity [None]
  - Enterococcal infection [None]
  - Off label use [None]
